FAERS Safety Report 12117644 (Version 1)
Quarter: 2016Q1

REPORT INFORMATION
  Report Type: Report from Study
  Country: US (occurrence: US)
  Receive Date: 20160226
  Receipt Date: 20160226
  Transmission Date: 20160526
  Serious: Yes (Hospitalization, Other)
  Sender: FDA-Public Use
  Company Number: US-BRISTOL-MYERS SQUIBB COMPANY-20630067

PATIENT
  Age: 70 Year
  Sex: Female
  Weight: 64.5 kg

DRUGS (3)
  1. EXTERNAL-BISACODYL [Suspect]
     Active Substance: BISACODYL
     Indication: CONSTIPATION
     Route: 065
  2. IPILIMUMAB [Suspect]
     Active Substance: IPILIMUMAB
     Indication: MALIGNANT MELANOMA
     Dosage: 90MINS ON WEEKS 24, 36, 48 AND 60  184 MG
     Route: 042
     Dates: start: 20140303
  3. INTERFERON ALFA NOS [Suspect]
     Active Substance: INTERFERON ALFA-2A OR INTERFERON ALFA-2B
     Indication: MALIGNANT MELANOMA
     Dosage: 1 DF= 10 MU/M2   1, 3 AND 5 X 48 WEEKS
     Route: 058
     Dates: start: 20140303

REACTIONS (4)
  - Hyponatraemia [Recovered/Resolved]
  - Enterocolitis [Recovered/Resolved]
  - Diarrhoea [Recovered/Resolved]
  - Vomiting [None]

NARRATIVE: CASE EVENT DATE: 20140403
